FAERS Safety Report 4377311-1 (Version None)
Quarter: 2004Q2

REPORT INFORMATION
  Report Type: 
  Country: None (occurrence: None)
  Receive Date: 20040614
  Receipt Date: 20040614
  Transmission Date: 20050107
  Serious: Yes (Hospitalization)
  Sender: FDA-Public Use
  Company Number: None

PATIENT
  Age: 63 Year
  Sex: Female
  Weight: 78.4723 kg

DRUGS (10)
  1. ARANESP 200 MCG AMGEN [Suspect]
     Indication: ANAEMIA
     Dosage: 200 Q.O.W. SUBCUTANEOUS
     Route: 058
     Dates: start: 20040312, end: 20040520
  2. ARANESP 200 MCG AMGEN [Suspect]
     Indication: NEOPLASM
     Dosage: 200 Q.O.W. SUBCUTANEOUS
     Route: 058
     Dates: start: 20040312, end: 20040520
  3. LISINOPRIL AND HYDROCHLOROTHIAZIDE [Concomitant]
  4. TOPROL-XL [Concomitant]
  5. NORCO [Concomitant]
  6. CHEMO-DOXORUBICIN [Concomitant]
  7. VINBLASTINE SULFATE [Concomitant]
  8. BLEOMYCIN [Concomitant]
  9. CYTOXAN [Concomitant]
  10. PREDNISONE [Concomitant]

REACTIONS (2)
  - DEEP VEIN THROMBOSIS [None]
  - PULMONARY EMBOLISM [None]
